FAERS Safety Report 10233559 (Version 1)
Quarter: 2014Q2

REPORT INFORMATION
  Report Type: Report from Study
  Country: US (occurrence: US)
  Receive Date: 20140612
  Receipt Date: 20140612
  Transmission Date: 20141212
  Serious: Yes (Hospitalization, Other)
  Sender: FDA-Public Use
  Company Number: US-ABBVIE-14P-163-1244384-00

PATIENT
  Sex: Female

DRUGS (11)
  1. HUMIRA [Suspect]
     Indication: CROHN^S DISEASE
     Dates: start: 201301, end: 201301
  2. HUMIRA [Suspect]
     Dates: start: 201301, end: 201301
  3. HUMIRA [Suspect]
     Dates: start: 201302
  4. HUMIRA [Suspect]
     Dates: start: 201310, end: 201310
  5. HUMIRA [Suspect]
     Dates: start: 201310
  6. HUMIRA [Suspect]
     Dates: start: 2014
  7. OMEPRAZOLE [Concomitant]
     Indication: GASTROOESOPHAGEAL REFLUX DISEASE
  8. GABAPENTIN [Concomitant]
     Indication: ABDOMINAL PAIN
  9. FLUOXETINE [Concomitant]
     Indication: DEPRESSION
  10. PREDNISONE [Concomitant]
     Indication: CROHN^S DISEASE
  11. PHENERGAN [Concomitant]
     Indication: NAUSEA

REACTIONS (6)
  - Gastrointestinal polyp haemorrhage [Recovered/Resolved]
  - Chronic sinusitis [Recovering/Resolving]
  - Clostridium difficile infection [Recovered/Resolved]
  - Gastrointestinal haemorrhage [Recovered/Resolved]
  - Herpes zoster [Recovered/Resolved]
  - Anal fissure [Recovering/Resolving]
